FAERS Safety Report 6545913-X (Version None)
Quarter: 2010Q1

REPORT INFORMATION
  Report Type: 
  Country: None (occurrence: None)
  Receive Date: 20100121
  Receipt Date: 20100113
  Transmission Date: 20100710
  Serious: Yes (Death, Life-Threatening, Other)
  Sender: FDA-Public Use
  Company Number: GB-BAXTER-2010BH001082

PATIENT
  Age: 6 Week
  Sex: Male

DRUGS (5)
  1. SEVOFLURANE [Suspect]
     Indication: MAINTENANCE OF ANAESTHESIA
     Route: 055
  2. FENTANYL [Suspect]
     Indication: ANALGESIC THERAPY
     Route: 042
  3. PROPOFOL [Suspect]
     Indication: INDUCTION OF ANAESTHESIA
     Route: 042
  4. MIDAZOLAM HCL [Suspect]
     Indication: DRUG USE FOR UNKNOWN INDICATION
     Route: 042
  5. DEXTROSE 10% [Concomitant]
     Indication: FLUID REPLACEMENT
     Route: 042

REACTIONS (2)
  - METABOLIC ACIDOSIS [None]
  - RESPIRATORY FAILURE [None]
